FAERS Safety Report 8458225-4 (Version None)
Quarter: 2012Q2

REPORT INFORMATION
  Report Type: 
  Country: None (occurrence: None)
  Receive Date: 20120622
  Receipt Date: 20120608
  Transmission Date: 20120825
  Serious: Yes (Death, Hospitalization, Other)
  Sender: FDA-Public Use
  Company Number: US-ELI_LILLY_AND_COMPANY-US201011002614

PATIENT
  Sex: Male
  Weight: 68.9 kg

DRUGS (19)
  1. SENNOSIDES A+B [Concomitant]
  2. METOPROLOL [Concomitant]
     Indication: HYPERTENSION
     Dosage: UNK
     Dates: start: 20100714
  3. CARBOPLATIN [Suspect]
     Indication: NON-SMALL CELL LUNG CANCER
     Dosage: 6 D/F (AUC), OTHER EVERY 21 DAYS
     Route: 042
     Dates: start: 20101020, end: 20101020
  4. ALBUTEROL [Concomitant]
  5. MORPHINE [Concomitant]
  6. PEMETREXED [Suspect]
     Indication: NON-SMALL CELL LUNG CANCER
     Dosage: 500 MG/M2, OTHER (EVERY 21 DAYS)
     Route: 042
     Dates: start: 20101020, end: 20101020
  7. FOLIC ACID [Concomitant]
     Indication: PROPHYLAXIS
     Dates: start: 20101118
  8. PROCHLORPERAZINE [Concomitant]
     Indication: NAUSEA
     Dosage: UNK, AS NEEDED
     Dates: start: 20101020
  9. OMEPRAZOLE [Concomitant]
     Indication: GASTROOESOPHAGEAL REFLUX DISEASE
     Dosage: UNK
     Dates: start: 20100716
  10. ASPIRIN [Concomitant]
     Indication: CORONARY ARTERY DISEASE
     Dosage: UNK
     Dates: start: 20060608
  11. TRIAMCINOLONE [Concomitant]
     Indication: ACTINIC KERATOSIS
     Dosage: UNK
     Dates: start: 20081215
  12. MOXIFLOXACIN [Concomitant]
  13. AMIODARONE HYDROCHLORIDE [Concomitant]
  14. VITAMIN B-12 [Concomitant]
     Dates: start: 20101118
  15. LORTADINE [Concomitant]
     Indication: HYPERSENSITIVITY
     Dates: start: 20100714
  16. SIMVASTATIN [Concomitant]
     Indication: BLOOD CHOLESTEROL
     Dosage: 80 MG, UNK
     Route: 048
     Dates: start: 20100716
  17. DOCUSATE [Concomitant]
  18. LORAZEPAM [Concomitant]
  19. VARDENAFIL HYDROCHLORIDE (LEVITRA) [Concomitant]
     Indication: ERECTILE DYSFUNCTION
     Dosage: UNK
     Dates: start: 20100714

REACTIONS (4)
  - NODAL ARRHYTHMIA [None]
  - ASPIRATION [None]
  - TROPONIN I [None]
  - SMALL INTESTINAL OBSTRUCTION [None]
